FAERS Safety Report 8834349 (Version 2)
Quarter: 2012Q4

REPORT INFORMATION
  Report Type: 
  Country: US (occurrence: US)
  Receive Date: 20121010
  Receipt Date: 20121207
  Transmission Date: 20130627
  Serious: Yes (Other)
  Sender: FDA-Public Use
  Company Number: CHPA2012US021006

PATIENT
  Age: 72 Year
  Sex: Female

DRUGS (15)
  1. BENEFIBER PLUS CALCIUM WITH WHEAT DEXTRIN [Suspect]
     Indication: BOWEL MOVEMENT IRREGULARITY
     Dosage: 2 or 3 DF, ONCE A DAY
     Route: 048
  2. BENEFIBER W/ WHEAT DEXTRIN [Suspect]
     Indication: BOWEL MOVEMENT IRREGULARITY
     Dosage: 3 TSP, Unk
     Route: 048
  3. BENEFIBER W/ WHEAT DEXTRIN [Suspect]
     Indication: BOWEL MOVEMENT IRREGULARITY
     Dosage: Unk, Unk
     Route: 048
  4. BENEFIBER W/ WHEAT DEXTRIN [Suspect]
     Indication: BOWEL MOVEMENT IRREGULARITY
     Dosage: Unk, Unk
     Route: 048
  5. CALCIUM [Concomitant]
     Dosage: Unk, Unk
  6. VITAMIN D [Concomitant]
     Dosage: Unk, Unk
  7. SYNTHROID [Concomitant]
     Indication: THYROID DISORDER
     Dosage: Unk, Unk
  8. NEXIUM                             /01479302/ [Concomitant]
     Indication: GASTROOESOPHAGEAL REFLUX DISEASE
     Dosage: Unk, Unk
  9. NEXIUM                             /01479302/ [Concomitant]
     Indication: PRECANCEROUS CELLS PRESENT
  10. ZANTAC [Concomitant]
     Indication: GASTROOESOPHAGEAL REFLUX DISEASE
     Dosage: Unk, AT NIGHT
  11. ZANTAC [Concomitant]
     Indication: PRECANCEROUS CELLS PRESENT
  12. BENADRYL ^PARKE DAVIS^                  /ISR/ [Concomitant]
     Indication: HYPERSENSITIVITY
     Dosage: Unk, Unk
  13. RANITIDINE [Concomitant]
     Indication: HYPERSENSITIVITY
     Dosage: Unk, Unk
  14. PRAVASTATIN [Concomitant]
     Indication: BLOOD CHOLESTEROL INCREASED
     Dosage: Unk, Unk
  15. METOPROLOL [Concomitant]
     Indication: HEART RATE INCREASED
     Dosage: Unk, Unk

REACTIONS (4)
  - Osteopenia [Not Recovered/Not Resolved]
  - Diabetes mellitus [Not Recovered/Not Resolved]
  - Temporal arteritis [Not Recovered/Not Resolved]
  - Off label use [Unknown]
